FAERS Safety Report 12228203 (Version 1)
Quarter: 2016Q1

REPORT INFORMATION
  Report Type: Spontaneous
  Country: US (occurrence: None)
  Receive Date: 20160330
  Receipt Date: 20160330
  Transmission Date: 20160526
  Serious: Yes (Disabling)
  Sender: FDA-Public Use
  Company Number: None

PATIENT
  Age: 58 Year
  Sex: Female
  Weight: 64.41 kg

DRUGS (4)
  1. CIPRO [Suspect]
     Active Substance: CIPROFLOXACIN HYDROCHLORIDE
     Indication: DENTAL CLEANING
     Dosage: 14 TWICE DAILY
     Route: 048
     Dates: start: 20150901, end: 20150908
  2. CIPRO [Suspect]
     Active Substance: CIPROFLOXACIN HYDROCHLORIDE
     Indication: LOCAL SWELLING
     Dosage: 14 TWICE DAILY
     Route: 048
     Dates: start: 20150901, end: 20150908
  3. NP THYROID [Concomitant]
     Active Substance: LEVOTHYROXINE\LIOTHYRONINE
  4. MULTIVITAMIN [Concomitant]
     Active Substance: VITAMINS

REACTIONS (8)
  - Arthralgia [None]
  - Burning sensation [None]
  - Peripheral swelling [None]
  - Fatigue [None]
  - Joint swelling [None]
  - Skin discolouration [None]
  - Gait disturbance [None]
  - Insomnia [None]

NARRATIVE: CASE EVENT DATE: 20150901
